FAERS Safety Report 4893652-3 (Version None)
Quarter: 2005Q4

REPORT INFORMATION
  Report Type: 
  Country: None (occurrence: None)
  Receive Date: 20051223
  Receipt Date: 20051006
  Transmission Date: 20060501
  Serious: No
  Sender: FDA-Public Use
  Company Number: 2005PV002874

PATIENT
  Age: 60 Year
  Sex: Female
  Weight: 113.3993 kg

DRUGS (9)
  1. SYMLIN [Suspect]
     Indication: DIABETES MELLITUS NON-INSULIN-DEPENDENT
     Dosage: 60 MCG;TID;SC
     Route: 058
     Dates: start: 20051004
  2. BYETTA [Suspect]
     Indication: DIABETES MELLITUS NON-INSULIN-DEPENDENT
     Dosage: 5 MCG;BID;SC
     Route: 058
     Dates: start: 20050827, end: 20050926
  3. DIOVAN [Concomitant]
  4. LIPITOR [Concomitant]
  5. IBUPROFEN [Concomitant]
  6. AVANDIA [Concomitant]
  7. STARLIX [Concomitant]
  8. HUMULIN 70/30 [Concomitant]
  9. REGULAR INSULIN [Concomitant]

REACTIONS (3)
  - DYSPEPSIA [None]
  - NAUSEA [None]
  - URTICARIA [None]
